FAERS Safety Report 8802817 (Version 3)
Quarter: 2013Q1

REPORT INFORMATION
  Report Type: Spontaneous
  Country: US (occurrence: US)
  Receive Date: 20120921
  Receipt Date: 20130222
  Transmission Date: 20140127
  Serious: No
  Sender: FDA-Public Use
  Company Number: US-009507513-1209USA006202

PATIENT
  Age: 46 Year
  Sex: Female

DRUGS (7)
  1. AZASITE [Suspect]
     Indication: CONJUNCTIVITIS BACTERIAL
     Dosage: 1 GTT, QPM
     Route: 047
     Dates: start: 20120911
  2. AZASITE [Suspect]
     Indication: KERATITIS
  3. AZASITE [Suspect]
     Indication: DRY EYE
  4. METFORMIN [Concomitant]
  5. PRILOSEC [Concomitant]
  6. GLIMEPIRIDE [Concomitant]
  7. LISINOPRIL [Concomitant]

REACTIONS (3)
  - Eye irritation [Unknown]
  - Inappropriate schedule of drug administration [Unknown]
  - Pemphigus [Unknown]
